FAERS Safety Report 6776329-9 (Version None)
Quarter: 2010Q2

REPORT INFORMATION
  Report Type: 
  Country: None (occurrence: None)
  Receive Date: 20100615
  Receipt Date: 20100531
  Transmission Date: 20101027
  Serious: Yes (Other)
  Sender: FDA-Public Use
  Company Number: 013285

PATIENT

DRUGS (1)
  1. LEVETIRACETAM [Suspect]
     Indication: EPILEPSY
     Dosage: INITIAL TITRATION DOSE 5MG/KG TWICE DAILY FOR TWO WEEKS, INCREASING DOSE EVERY FORNIGHT BY 5MG/KG TW

REACTIONS (1)
  - STATUS EPILEPTICUS [None]
